FAERS Safety Report 16510903 (Version 1)
Quarter: 2019Q3

REPORT INFORMATION
  Report Type: Spontaneous
  Country: US (occurrence: US)
  Receive Date: 20190702
  Receipt Date: 20190702
  Transmission Date: 20191004
  Serious: No
  Sender: FDA-Public Use
  Company Number: US-ACCORD-067719

PATIENT
  Age: 70 Year
  Sex: Male

DRUGS (5)
  1. JAKAFI [Interacting]
     Active Substance: RUXOLITINIB
     Indication: MYELOFIBROSIS
     Dosage: 5MG ,BID
     Route: 048
     Dates: start: 20180307
  2. ACETYLSALICYLIC ACID [Concomitant]
     Active Substance: ASPIRIN
  3. ALLOPURINOL. [Suspect]
     Active Substance: ALLOPURINOL
     Indication: PRODUCT USED FOR UNKNOWN INDICATION
  4. TRAMADOL. [Concomitant]
     Active Substance: TRAMADOL
     Indication: HEADACHE
  5. ASCORBIC ACID/CALCIUM PANTOTHENATE/CYANOCOBALAMIN/NICOTINAMIDE/PYRIDOXINE HYDROCHLORIDE/RIBOFLAVIN/T [Concomitant]

REACTIONS (8)
  - Platelet disorder [Unknown]
  - Fatigue [Unknown]
  - Drug interaction [Unknown]
  - Headache [Unknown]
  - Weight increased [Unknown]
  - Blister [Recovered/Resolved]
  - Skin disorder [Unknown]
  - Nausea [Unknown]

NARRATIVE: CASE EVENT DATE: 20180309
